FAERS Safety Report 8616731-3 (Version None)
Quarter: 2012Q3

REPORT INFORMATION
  Report Type: 
  Country: None (occurrence: None)
  Receive Date: 20120823
  Receipt Date: 20120819
  Transmission Date: 20120928
  Serious: Yes (Other)
  Sender: FDA-Public Use
  Company Number: US-PFIZER INC-2012199914

PATIENT
  Age: 58 Year
  Sex: Female
  Weight: 68.027 kg

DRUGS (8)
  1. CHANTIX [Suspect]
     Dosage: 1 MG, UNK
     Route: 048
     Dates: start: 20120801
  2. SUCRALFATE [Suspect]
     Indication: IRRITABLE BOWEL SYNDROME
     Dosage: 1 G, DAILY
  3. LORAZEPAM [Suspect]
     Indication: ANXIETY
     Dosage: UNK
  4. CELEXA [Concomitant]
     Dosage: 20 MG, UNK
  5. CHANTIX [Suspect]
     Dosage: 0.5 MG, 1X/DAY
     Route: 048
     Dates: start: 20120810
  6. PREMPRO [Concomitant]
     Indication: HOT FLUSH
     Dosage: UNK
  7. CHANTIX [Suspect]
     Indication: SMOKING CESSATION THERAPY
     Dosage: UNK
     Route: 048
     Dates: start: 20120801
  8. KLONOPIN [Concomitant]
     Indication: ANXIETY
     Dosage: 1 MG, 2X/DAY

REACTIONS (10)
  - DRUG INEFFECTIVE [None]
  - ABDOMINAL DISCOMFORT [None]
  - HAEMORRHAGE [None]
  - GASTROINTESTINAL PAIN [None]
  - FATIGUE [None]
  - DEPRESSION [None]
  - IRRITABLE BOWEL SYNDROME [None]
  - HEADACHE [None]
  - NIGHTMARE [None]
  - CONSTIPATION [None]
